FAERS Safety Report 17345835 (Version 1)
Quarter: 2020Q1

REPORT INFORMATION
  Report Type: Spontaneous
  Country: DK (occurrence: DK)
  Receive Date: 20200129
  Receipt Date: 20200129
  Transmission Date: 20200409
  Serious: Yes (Other)
  Sender: FDA-Public Use
  Company Number: NVSC2020DK018847

PATIENT
  Age: 24 Year
  Sex: Female

DRUGS (5)
  1. MYDRIACYL [Concomitant]
     Active Substance: TROPICAMIDE
     Dosage: UNK (DOSIS: VARIERENDE STYRKE: 1 PERCENT)
     Route: 050
     Dates: start: 20171022, end: 20171201
  2. ACICLOVIR [Concomitant]
     Active Substance: ACYCLOVIR
     Indication: OPHTHALMIC HERPES SIMPLEX
     Dosage: 400 MG (TRE GANGE DAGLIGT I TO M?NEDER, HERFTER TO GANGE DAGLIGT I 10 M?NEDER. STYRKE: 400 MG)
     Route: 048
     Dates: start: 20171106, end: 201711
  3. MAXIDEX [Suspect]
     Active Substance: DEXAMETHASONE
     Indication: IRIDOCYCLITIS
     Dosage: UNK (DOSIS VARIERENDE. STYRKE: 1 MG/ML)
     Route: 050
     Dates: start: 20171004
  4. ACICLOVIR [Concomitant]
     Active Substance: ACYCLOVIR
     Dosage: 400 MG (TRE GANGE DAGLIGT I TO M?NEDER, HERFTER TO GANGE DAGLIGT I 10 M?NEDER. STYRKE: 400 MG)
     Route: 065
     Dates: start: 20180104
  5. MYDRIACYL [Concomitant]
     Active Substance: TROPICAMIDE
     Indication: IRIDOCYCLITIS
     Dosage: UNK (DOSIS: VARIERENDE STYRKE: 1 PERCENT)
     Route: 050
     Dates: start: 20171004, end: 20171011

REACTIONS (1)
  - Cataract [Not Recovered/Not Resolved]

NARRATIVE: CASE EVENT DATE: 20180904
